FAERS Safety Report 17940959 (Version 1)
Quarter: 2020Q2

REPORT INFORMATION
  Report Type: Spontaneous
  Country: US (occurrence: US)
  Receive Date: 20200625
  Receipt Date: 20200625
  Transmission Date: 20200714
  Serious: No
  Sender: FDA-Public Use
  Company Number: US-SA-2020SA152887

PATIENT

DRUGS (1)
  1. FERRLECIT [Suspect]
     Active Substance: SODIUM FERRIC GLUCONATE COMPLEX
     Dosage: 250 MG IV INFUSION OVER 2 HOURS
     Route: 042

REACTIONS (3)
  - Hypotension [Unknown]
  - Tachycardia [Unknown]
  - Lip swelling [Unknown]
